FAERS Safety Report 24686923 (Version 3)
Quarter: 2025Q1

REPORT INFORMATION
  Report Type: Report from Study
  Country: US (occurrence: US)
  Receive Date: 20241202
  Receipt Date: 20250101
  Transmission Date: 20250409
  Serious: Yes (Hospitalization, Other)
  Sender: ABBVIE
  Company Number: US-ABBVIE-6024154

PATIENT
  Age: 70 Year
  Sex: Female
  Weight: 64.41 kg

DRUGS (4)
  1. VENCLEXTA [Suspect]
     Active Substance: VENETOCLAX
     Indication: Myelodysplastic syndrome
     Dosage: TOOK ONE 50MG AND TWO 10MG DAILY
     Route: 048
     Dates: start: 202411, end: 20241203
  2. POSACONAZOLE [Concomitant]
     Active Substance: POSACONAZOLE
     Indication: Antifungal treatment
  3. LEVOFLOXACIN [Concomitant]
     Active Substance: LEVOFLOXACIN
     Indication: Antibiotic prophylaxis
  4. ACYCLOVIR [Concomitant]
     Active Substance: ACYCLOVIR
     Indication: Antiviral treatment

REACTIONS (3)
  - Myelofibrosis [Unknown]
  - Acute myeloid leukaemia [Unknown]
  - Blast cells present [Not Recovered/Not Resolved]

NARRATIVE: CASE EVENT DATE: 20240101
